FAERS Safety Report 23951046 (Version 1)
Quarter: 2024Q2

REPORT INFORMATION
  Report Type: Spontaneous
  Country: US (occurrence: US)
  Receive Date: 20240607
  Receipt Date: 20240607
  Transmission Date: 20240715
  Serious: No
  Sender: FDA-Public Use
  Company Number: US-PURACAP-US-2024EPCSPO00649

PATIENT
  Age: 86 Year
  Sex: Male

DRUGS (3)
  1. BENZONATATE [Suspect]
     Active Substance: BENZONATATE
     Indication: Cough
     Route: 048
     Dates: start: 202405
  2. VYNDAMAX [Concomitant]
     Active Substance: TAFAMIDIS
     Indication: Product use in unapproved indication
     Route: 065
  3. METOPROLOL [Concomitant]
     Active Substance: METOPROLOL
     Indication: Product used for unknown indication
     Route: 065

REACTIONS (1)
  - Drug ineffective [Unknown]
